FAERS Safety Report 9438407 (Version 3)
Quarter: 2013Q3

REPORT INFORMATION
  Report Type: Report from Study
  Country: TR (occurrence: TR)
  Receive Date: 20130802
  Receipt Date: 20130822
  Transmission Date: 20140515
  Serious: Yes (Hospitalization)
  Sender: FDA-Public Use
  Company Number: TR-BAXTER-2013BAX030127

PATIENT
  Age: 8 Year
  Sex: Male

DRUGS (2)
  1. RECOMBINATE 250 IU [Suspect]
     Indication: FACTOR VIII DEFICIENCY
     Route: 065
     Dates: start: 2008
  2. RECOMBINATE 250 IU [Suspect]
     Route: 065

REACTIONS (1)
  - Post procedural haemorrhage [Recovered/Resolved]
